FAERS Safety Report 5106737-3 (Version None)
Quarter: 2006Q3

REPORT INFORMATION
  Report Type: 
  Country: None (occurrence: None)
  Receive Date: 20060913
  Receipt Date: 20060824
  Transmission Date: 20061208
  Serious: Yes (Other)
  Sender: FDA-Public Use
  Company Number: GXKR2006FR05221

PATIENT
  Age: 30 Year
  Sex: Male

DRUGS (4)
  1. RIBAVIRIN [Suspect]
     Indication: HEPATITIS C
     Dosage: 1000 MG, QD,
  2. PEG-INTRON [Suspect]
     Indication: HEPATITIS C
     Dosage: 1.5 A, AUG/KG WEEKLY,
  3. LAMIVUDINE [Concomitant]
  4. ZIDOVUDINE [Concomitant]

REACTIONS (3)
  - CYTOLYTIC HEPATITIS [None]
  - DEPRESSION [None]
  - IMMUNOGLOBULINS INCREASED [None]
